FAERS Safety Report 7964664-8 (Version None)
Quarter: 2011Q4

REPORT INFORMATION
  Report Type: 
  Country: None (occurrence: None)
  Receive Date: 20111208
  Receipt Date: 20111128
  Transmission Date: 20120403
  Serious: Yes (Disabling, Other)
  Sender: FDA-Public Use
  Company Number: BR-SANOFI-AVENTIS-2011SA078651

PATIENT
  Age: 71 Year
  Sex: Female
  Weight: 55 kg

DRUGS (9)
  1. LANTUS [Suspect]
     Indication: TYPE 2 DIABETES MELLITUS
     Dosage: FORM: CARTRIDGE
     Route: 058
     Dates: start: 20050101
  2. SIMVASTATIN [Concomitant]
     Route: 048
     Dates: start: 20060101
  3. DILTIAZEM [Concomitant]
     Indication: TYPE 2 DIABETES MELLITUS
     Dosage: DOSE: 2 TABLETS DAILY
     Route: 048
     Dates: start: 20050101
  4. OMEPRAZOLE [Concomitant]
     Route: 048
     Dates: start: 20090101
  5. NOVORAPID [Concomitant]
     Indication: TYPE 2 DIABETES MELLITUS
     Route: 058
     Dates: start: 20050101
  6. SUSTRATE [Concomitant]
     Route: 048
     Dates: start: 20010101
  7. ASPIRIN [Concomitant]
     Route: 048
     Dates: start: 20050101
  8. AUTOPEN 24 [Suspect]
     Indication: DEVICE THERAPY
  9. IRON POLYMALTOSE [Concomitant]
     Indication: RENAL DISORDER
     Route: 048
     Dates: start: 20090101

REACTIONS (1)
  - VISUAL IMPAIRMENT [None]
